FAERS Safety Report 4901273-9 (Version None)
Quarter: 2006Q1

REPORT INFORMATION
  Report Type: 
  Country: None (occurrence: None)
  Receive Date: 20060206
  Receipt Date: 20060116
  Transmission Date: 20060701
  Serious: Yes (Other)
  Sender: FDA-Public Use
  Company Number: PHEH2006US00957

PATIENT
  Age: 78 Year
  Sex: Female

DRUGS (6)
  1. LOTREL [Suspect]
     Indication: SINUS TACHYCARDIA
     Dosage: 5/20MG, QD
     Route: 048
     Dates: start: 20041001
  2. METOPROLOL [Suspect]
     Indication: SINUS TACHYCARDIA
     Dosage: UNK, QD
     Route: 048
     Dates: start: 20041001
  3. CELEBREX [Concomitant]
     Dosage: UNK, PRN
  4. CARISOPRODOL [Concomitant]
  5. PROPOXYPHENE HCL AND ACETAMINOPHEN [Concomitant]
  6. EFFEXOR [Concomitant]

REACTIONS (2)
  - DEEP VEIN THROMBOSIS [None]
  - VENA CAVA FILTER INSERTION [None]
